FAERS Safety Report 14490982 (Version 1)
Quarter: 2018Q1

REPORT INFORMATION
  Report Type: Spontaneous
  Country: US (occurrence: US)
  Receive Date: 20180206
  Receipt Date: 20180206
  Transmission Date: 20180509
  Serious: No
  Sender: FDA-Public Use
  Company Number: US-BAYER-2018-021222

PATIENT
  Age: 76 Year
  Sex: Female
  Weight: 54.42 kg

DRUGS (1)
  1. MIRALAX [Suspect]
     Active Substance: POLYETHYLENE GLYCOL 3350
     Indication: CONSTIPATION
     Dosage: 0.5 DF, QD
     Route: 048
     Dates: start: 2016

REACTIONS (4)
  - Incorrect dose administered [Unknown]
  - Product use issue [Unknown]
  - Circumstance or information capable of leading to medication error [Unknown]
  - Off label use [Unknown]

NARRATIVE: CASE EVENT DATE: 2016
